FAERS Safety Report 8902748 (Version 3)
Quarter: 2014Q3

REPORT INFORMATION
  Report Type: Spontaneous
  Country: US (occurrence: US)
  Receive Date: 20121112
  Receipt Date: 20140725
  Transmission Date: 20150326
  Serious: Yes (Hospitalization)
  Sender: FDA-Public Use
  Company Number: US-BAYER-2012-116091

PATIENT
  Age: 51 Year
  Sex: Female
  Weight: 54.42 kg

DRUGS (11)
  1. MIDRIN [Concomitant]
     Active Substance: ACETAMINOPHEN\DICHLORALPHENAZONE\ISOMETHEPTENE
     Dosage: UNK UNK, PRN
     Dates: start: 20120806
  2. SYNTHROID [Concomitant]
     Active Substance: LEVOTHYROXINE SODIUM
     Dosage: 50 ?G, DAILY
     Dates: start: 20091028, end: 20120806
  3. OMEPRAZOLE. [Concomitant]
     Active Substance: OMEPRAZOLE
     Dosage: 20 MG, PRN
     Dates: start: 20120806
  4. YAZ [Suspect]
     Active Substance: DROSPIRENONE\ETHINYL ESTRADIOL
     Indication: PREMENSTRUAL SYNDROME
  5. GIANVI [Suspect]
     Active Substance: DROSPIRENONE\ETHINYL ESTRADIOL
     Dosage: UNK
     Route: 048
     Dates: start: 20070101, end: 20120804
  6. RESTASIS [Concomitant]
     Active Substance: CYCLOSPORINE
     Dosage: ONE DROP
     Route: 047
     Dates: start: 20110217, end: 20120806
  7. PREDNISOLONE. [Concomitant]
     Active Substance: PREDNISOLONE
     Indication: SCIATICA
     Dosage: 10 MG, 12 DAY DOSE PACK
     Dates: start: 20120723
  8. ZYRTEC [Concomitant]
     Active Substance: CETIRIZINE HYDROCHLORIDE
     Indication: RHINITIS ALLERGIC
     Dosage: 10 MG, DAILY
     Dates: start: 20120806
  9. DRISDOL [Concomitant]
     Active Substance: ERGOCALCIFEROL
     Dosage: UNK UNK, PRN
     Dates: start: 20120806
  10. YAZ [Suspect]
     Active Substance: DROSPIRENONE\ETHINYL ESTRADIOL
     Indication: MENORRHAGIA
     Dosage: UNK
     Route: 048
     Dates: start: 2001, end: 20120804
  11. TRAVATAN [Concomitant]
     Active Substance: TRAVOPROST
     Dosage: 1 DROP
     Route: 047
     Dates: start: 20110306, end: 20120806

REACTIONS (6)
  - Pulmonary embolism [None]
  - Deep vein thrombosis [None]
  - Breast disorder [None]
  - Injury [None]
  - Thrombophlebitis superficial [None]
  - Thyroid neoplasm [None]

NARRATIVE: CASE EVENT DATE: 20120806
